FAERS Safety Report 5330244-6 (Version None)
Quarter: 2007Q2

REPORT INFORMATION
  Report Type: 
  Country: None (occurrence: None)
  Receive Date: 20070521
  Receipt Date: 20070509
  Transmission Date: 20071010
  Serious: Yes (Other)
  Sender: FDA-Public Use
  Company Number: US-SANOFI-SYNTHELABO-A03200702972

PATIENT
  Age: 62 Year
  Sex: Female

DRUGS (2)
  1. AMBIEN CR [Suspect]
     Indication: INSOMNIA
     Route: 048
     Dates: start: 20061201
  2. METFORMIN HCL [Concomitant]
     Dosage: UNK
     Route: 048

REACTIONS (4)
  - CARTILAGE INJURY [None]
  - FALL [None]
  - MOUTH INJURY [None]
  - SLEEP WALKING [None]
